FAERS Safety Report 6722492-5 (Version None)
Quarter: 2010Q2

REPORT INFORMATION
  Report Type: 
  Country: None (occurrence: None)
  Receive Date: 20100512
  Receipt Date: 20100507
  Transmission Date: 20101027
  Serious: Yes (Other)
  Sender: FDA-Public Use
  Company Number: VE-CUBIST-2010S1000242

PATIENT
  Age: 44 Year
  Sex: Female

DRUGS (1)
  1. CUBICIN [Suspect]
     Indication: CELLULITIS
     Route: 042
     Dates: start: 20100503, end: 20100506

REACTIONS (3)
  - CHILLS [None]
  - HYPERTHERMIA [None]
  - MYALGIA [None]
